FAERS Safety Report 6137710-4 (Version None)
Quarter: 2009Q1

REPORT INFORMATION
  Report Type: 
  Country: None (occurrence: None)
  Receive Date: 20090331
  Receipt Date: 20081206
  Transmission Date: 20090719
  Serious: Yes (Other)
  Sender: FDA-Public Use
  Company Number: US-KINGPHARMUSA00001-K200801387

PATIENT
  Sex: Male

DRUGS (1)
  1. THROMBIN NOS [Suspect]
     Indication: SURGERY

REACTIONS (3)
  - ACTIVATED PARTIAL THROMBOPLASTIN TIME PROLONGED [None]
  - FACTOR V DEFICIENCY [None]
  - PROTHROMBIN TIME PROLONGED [None]
